FAERS Safety Report 10228577 (Version 2)
Quarter: 2014Q4

REPORT INFORMATION
  Report Type: Spontaneous
  Country: US (occurrence: US)
  Receive Date: 20140610
  Receipt Date: 20141118
  Transmission Date: 20150528
  Serious: Yes (Hospitalization)
  Sender: FDA-Public Use
  Company Number: US-BAYER-2014-085339

PATIENT
  Age: 31 Year
  Sex: Female
  Weight: 102.4 kg

DRUGS (3)
  1. OCELLA [Suspect]
     Active Substance: DROSPIRENONE\ETHINYL ESTRADIOL
     Dosage: UNK
     Dates: start: 2001, end: 2007
  2. YAZ [Suspect]
     Active Substance: DROSPIRENONE\ETHINYL ESTRADIOL
     Dosage: UNK
     Dates: start: 2001, end: 2007
  3. YASMIN [Suspect]
     Active Substance: DROSPIRENONE\ETHINYL ESTRADIOL
     Dosage: UNK
     Dates: start: 2001, end: 2007

REACTIONS (9)
  - Pulmonary embolism [Recovered/Resolved]
  - Anxiety [None]
  - Pain [Recovered/Resolved]
  - Injury [Recovered/Resolved]
  - Deep vein thrombosis [None]
  - Pain [None]
  - Abdominal pain [None]
  - General physical health deterioration [Recovered/Resolved]
  - Emotional distress [None]

NARRATIVE: CASE EVENT DATE: 20080229
